FAERS Safety Report 19034330 (Version 2)
Quarter: 2022Q3

REPORT INFORMATION
  Report Type: Spontaneous
  Country: JP (occurrence: JP)
  Receive Date: 20210319
  Receipt Date: 20220714
  Transmission Date: 20221027
  Serious: Yes (Hospitalization, Other)
  Sender: FDA-Public Use
  Company Number: JP-GLAXOSMITHKLINE-JP2021JPN062230

PATIENT

DRUGS (7)
  1. VALTREX [Suspect]
     Active Substance: VALACYCLOVIR HYDROCHLORIDE
     Indication: Herpes simplex
     Dosage: 500 MG, BID
     Route: 048
     Dates: start: 20210205, end: 20210210
  2. VALTREX [Suspect]
     Active Substance: VALACYCLOVIR HYDROCHLORIDE
     Indication: Ulcer
  3. VALTREX [Suspect]
     Active Substance: VALACYCLOVIR HYDROCHLORIDE
     Indication: Infection
  4. CEPHALEXIN [Suspect]
     Active Substance: CEPHALEXIN
     Indication: Herpes simplex
     Dosage: 250 MG, QID
     Route: 048
     Dates: start: 20210205, end: 20210210
  5. CEPHALEXIN [Suspect]
     Active Substance: CEPHALEXIN
     Indication: Ulcer
  6. CEPHALEXIN [Suspect]
     Active Substance: CEPHALEXIN
     Indication: Infection
  7. FILGRASTIM BS INJECTION [Concomitant]
     Dosage: 150 UG, TWICE A WEEK
     Dates: start: 20200918, end: 20210122

REACTIONS (1)
  - Neutropenia [Recovering/Resolving]

NARRATIVE: CASE EVENT DATE: 20210208
